FAERS Safety Report 5806612-2 (Version None)
Quarter: 2008Q3

REPORT INFORMATION
  Report Type: 
  Country: None (occurrence: None)
  Receive Date: 20080710
  Receipt Date: 20080630
  Transmission Date: 20090109
  Serious: Yes (Other)
  Sender: FDA-Public Use
  Company Number: PHHY2008JP07974

PATIENT
  Sex: Male
  Weight: 45 kg

DRUGS (5)
  1. ZOMETA [Suspect]
     Indication: METASTASES TO BONE
     Dosage: UNK MG, QMO
     Route: 042
     Dates: start: 20061005, end: 20080228
  2. AREDIA [Suspect]
     Indication: METASTASES TO BONE
     Dosage: 90 MG, QMO
     Route: 042
     Dates: start: 20060420, end: 20060907
  3. TAXOL [Concomitant]
     Indication: METASTASES TO BONE
     Dosage: UNK
     Route: 042
     Dates: start: 20050331
  4. NOLVADEX [Concomitant]
     Indication: METASTASES TO BONE
     Dosage: 20 MG, UNK
     Route: 048
     Dates: start: 20060413
  5. ARIMIDEX [Concomitant]
     Dosage: 1 MG, UNK
     Route: 048
     Dates: start: 20031208, end: 20060412

REACTIONS (6)
  - BONE DISORDER [None]
  - DENTAL CARIES [None]
  - DENTAL TREATMENT [None]
  - OSTEONECROSIS [None]
  - TOOTH EXTRACTION [None]
  - TOOTHACHE [None]
